FAERS Safety Report 24247670 (Version 1)
Quarter: 2024Q3

REPORT INFORMATION
  Report Type: Report from Study
  Country: US (occurrence: None)
  Receive Date: 20240826
  Receipt Date: 20240826
  Transmission Date: 20241017
  Serious: Yes (Other)
  Sender: ASTRAZENECA
  Company Number: 2020SF14693

PATIENT
  Age: 28438 Day
  Sex: Female
  Weight: 62.1 kg

DRUGS (7)
  1. TAGRISSO [Suspect]
     Active Substance: OSIMERTINIB
     Indication: Lung neoplasm malignant
     Route: 048
     Dates: start: 202004, end: 20200805
  2. TAGRISSO [Suspect]
     Active Substance: OSIMERTINIB
     Indication: Lung neoplasm malignant
     Route: 048
     Dates: start: 202005
  3. TAGRISSO [Suspect]
     Active Substance: OSIMERTINIB
     Indication: Lung neoplasm malignant
     Route: 048
     Dates: start: 20200821
  4. TAGRISSO [Suspect]
     Active Substance: OSIMERTINIB
     Indication: Lung neoplasm malignant
     Dosage: 40MG ON MONDAY, WEDNESDAY, AND FRIDAY 2 TABLETS AND 1 TABLET ON THE OTHER DAYS.
     Route: 048
  5. TAGRISSO [Suspect]
     Active Substance: OSIMERTINIB
     Indication: Lung neoplasm malignant
     Dosage: 40 MG 1 TABLET DAILY FOR 4 DAYS AND THEN 80 MG 1 TABLET A DAY
     Route: 048
  6. TAGRISSO [Suspect]
     Active Substance: OSIMERTINIB
     Indication: Lung neoplasm malignant
     Route: 048
  7. ROPINIROLE [Suspect]
     Active Substance: ROPINIROLE
     Route: 048
     Dates: start: 20210204

REACTIONS (12)
  - Retinal detachment [Unknown]
  - Retinal injury [Unknown]
  - Impaired healing [Unknown]
  - Herpes ophthalmic [Unknown]
  - Eye infection viral [Unknown]
  - Liver function test increased [Unknown]
  - Dry eye [Not Recovered/Not Resolved]
  - Vision blurred [Unknown]
  - Body height decreased [Unknown]
  - Muscle spasms [Unknown]
  - Pruritus [Unknown]
  - Rash [Unknown]

NARRATIVE: CASE EVENT DATE: 20200701
